FAERS Safety Report 5212247-5 (Version None)
Quarter: 2007Q1

REPORT INFORMATION
  Report Type: 
  Country: None (occurrence: None)
  Receive Date: 20070118
  Receipt Date: 20070115
  Transmission Date: 20070707
  Serious: Yes (Hospitalization)
  Sender: FDA-Public Use
  Company Number: JP-BOEHRINGER INGELHEIM PHARMACEUTICALS, INC.-2007-BP-00684NB

PATIENT
  Age: 71 Year
  Sex: Female

DRUGS (7)
  1. MOBIC [Suspect]
     Indication: ARTHRALGIA
     Route: 048
     Dates: start: 20061227, end: 20070109
  2. WARFARIN SODIUM [Suspect]
     Route: 048
  3. GASTER [Concomitant]
     Route: 048
  4. MEVALOTIN [Concomitant]
     Route: 048
  5. ALFAROL [Concomitant]
     Route: 048
  6. FOSAMAC [Concomitant]
     Route: 048
  7. CALCIUM LACTATE [Concomitant]
     Route: 048

REACTIONS (2)
  - HAEMATOCHEZIA [None]
  - HAEMATURIA [None]
